FAERS Safety Report 9223665 (Version 2)
Quarter: 2013Q2

REPORT INFORMATION
  Report Type: Spontaneous
  Country: CA (occurrence: CA)
  Receive Date: 20130410
  Receipt Date: 20130610
  Transmission Date: 20140414
  Serious: Yes (Hospitalization)
  Sender: FDA-Public Use
  Company Number: CA-ELI_LILLY_AND_COMPANY-CA201304001106

PATIENT
  Age: 74 Year
  Sex: Female

DRUGS (4)
  1. FORTEO [Suspect]
     Indication: OSTEOPOROSIS
     Dosage: 20 UG, QD
     Route: 058
     Dates: start: 20120828
  2. ACETAMINOPHEN [Concomitant]
     Dosage: UNK, PRN
  3. VITAMIN D [Concomitant]
     Dosage: UNK
  4. CALCIUM [Concomitant]
     Dosage: 500 MG, UNK

REACTIONS (1)
  - Parkinson^s disease [Not Recovered/Not Resolved]
